FAERS Safety Report 18584679 (Version 1)
Quarter: 2020Q4

REPORT INFORMATION
  Report Type: Spontaneous
  Country: US (occurrence: US)
  Receive Date: 20201202
  Receipt Date: 20201202
  Transmission Date: 20210114
  Serious: Yes (Hospitalization)
  Sender: FDA-Public Use
  Company Number: None

PATIENT
  Age: 32 Year
  Sex: Male
  Weight: 120 kg

DRUGS (1)
  1. POLYETHYLENE GLYCOL 3350. [Suspect]
     Active Substance: POLYETHYLENE GLYCOL 3350
     Indication: BOWEL PREPARATION
     Route: 048
     Dates: start: 20201018, end: 20201018

REACTIONS (9)
  - Throat irritation [None]
  - Nausea [None]
  - Dyspnoea [None]
  - Cough [None]
  - Urticaria [None]
  - Pruritus [None]
  - Vomiting [None]
  - Wheezing [None]
  - Rash [None]

NARRATIVE: CASE EVENT DATE: 20201018
